FAERS Safety Report 9943187 (Version 2)
Quarter: 2014Q2

REPORT INFORMATION
  Report Type: Spontaneous
  Country: US (occurrence: US)
  Receive Date: 20140303
  Receipt Date: 20140516
  Transmission Date: 20141212
  Serious: Yes (Hospitalization)
  Sender: FDA-Public Use
  Company Number: US-B.I. PHARMACEUTICALS,INC./RIDGEFIELD-2014-BI-08384BP

PATIENT
  Age: 95 Year
  Sex: Male

DRUGS (7)
  1. PRADAXA [Suspect]
     Indication: ATRIAL FIBRILLATION
     Dosage: 300 MG
     Route: 048
     Dates: start: 2011
  2. METOPROLOL [Concomitant]
     Dosage: 100 MG
     Route: 048
  3. DILTIAZEM [Concomitant]
     Dosage: 180 MG
     Route: 048
  4. TAMSULOSIN [Concomitant]
     Route: 048
  5. PERSERVISION [Concomitant]
     Route: 048
  6. OXYCODONE [Concomitant]
     Indication: PAIN
     Route: 048
  7. OXYCONTIN [Concomitant]
     Route: 048

REACTIONS (13)
  - Fall [Recovered/Resolved]
  - Compression fracture [Not Recovered/Not Resolved]
  - Spinal column stenosis [Not Recovered/Not Resolved]
  - Asthenia [Not Recovered/Not Resolved]
  - Fall [Recovered/Resolved]
  - Fall [Recovered/Resolved]
  - Haemorrhage [Recovered/Resolved]
  - Fall [Recovered/Resolved]
  - Aphasia [Not Recovered/Not Resolved]
  - Loss of consciousness [Recovered/Resolved]
  - Lumbar vertebral fracture [Recovered/Resolved with Sequelae]
  - Fall [Recovered/Resolved]
  - Haematochezia [Not Recovered/Not Resolved]
